FAERS Safety Report 8620871 (Version 2)
Quarter: 2013Q2

REPORT INFORMATION
  Report Type: Spontaneous
  Country: US (occurrence: US)
  Receive Date: 20120619
  Receipt Date: 20130422
  Transmission Date: 20140414
  Serious: No
  Sender: FDA-Public Use
  Company Number: US-BIOGENIDEC-2012BI020786

PATIENT
  Age: 58 Year
  Sex: Female

DRUGS (1)
  1. TYSABRI [Suspect]
     Indication: MULTIPLE SCLEROSIS
     Route: 042
     Dates: start: 20090622

REACTIONS (6)
  - Hypotonia [Not Recovered/Not Resolved]
  - Pain in extremity [Not Recovered/Not Resolved]
  - Vein disorder [Not Recovered/Not Resolved]
  - Pneumonia [Recovered/Resolved]
  - Drug effect decreased [Not Recovered/Not Resolved]
  - Asthenia [Not Recovered/Not Resolved]
